FAERS Safety Report 13506036 (Version 1)
Quarter: 2017Q2

REPORT INFORMATION
  Report Type: Spontaneous
  Country: US (occurrence: US)
  Receive Date: 20170502
  Receipt Date: 20170502
  Transmission Date: 20170830
  Serious: No
  Sender: FDA-Public Use
  Company Number: US-ROCHE-1413711

PATIENT
  Sex: Male

DRUGS (1)
  1. AVASTIN [Suspect]
     Active Substance: BEVACIZUMAB
     Indication: GESTATIONAL DIABETES
     Route: 065

REACTIONS (5)
  - Abdominal pain upper [Unknown]
  - Dysgeusia [Unknown]
  - Parosmia [Unknown]
  - Gastric disorder [Unknown]
  - Appetite disorder [Unknown]
